FAERS Safety Report 6194507-7 (Version None)
Quarter: 2009Q2

REPORT INFORMATION
  Report Type: 
  Country: None (occurrence: None)
  Receive Date: 20090519
  Receipt Date: 20090511
  Transmission Date: 20091009
  Serious: Yes (Other)
  Sender: FDA-Public Use
  Company Number: CA-JNJFOC-20080705801

PATIENT
  Sex: Male
  Weight: 94 kg

DRUGS (1)
  1. FLOXIN [Suspect]
     Indication: PROSTATITIS
     Route: 065

REACTIONS (4)
  - BURNING SENSATION [None]
  - INSOMNIA [None]
  - PERIPHERAL SENSORY NEUROPATHY [None]
  - PRIAPISM [None]
